FAERS Safety Report 8440200-7 (Version None)
Quarter: 2012Q2

REPORT INFORMATION
  Report Type: 
  Country: None (occurrence: None)
  Receive Date: 20120615
  Receipt Date: 20120608
  Transmission Date: 20120825
  Serious: Yes (Other)
  Sender: FDA-Public Use
  Company Number: US-ROCHE-1062108

PATIENT
  Sex: Female
  Weight: 113.5 kg

DRUGS (7)
  1. XELODA [Suspect]
     Route: 048
     Dates: start: 20120502, end: 20120523
  2. MILK OF MAGNESIA TAB [Concomitant]
     Indication: ABDOMINAL DISTENSION
     Route: 048
     Dates: start: 20120420, end: 20120420
  3. IXABEPILONE [Concomitant]
     Indication: BREAST CANCER METASTATIC
     Route: 042
     Dates: start: 20120321
  4. CALCIUM CARBONATE [Concomitant]
     Indication: ABDOMINAL DISCOMFORT
     Route: 048
  5. XELODA [Suspect]
     Indication: BREAST CANCER METASTATIC
     Route: 048
     Dates: start: 20120321, end: 20120502
  6. TRAMADOL HCL [Concomitant]
     Indication: PAIN
     Route: 048
  7. ZOFRAN [Concomitant]
     Indication: NAUSEA
     Route: 048

REACTIONS (8)
  - ABDOMINAL DISCOMFORT [None]
  - DISEASE PROGRESSION [None]
  - NAUSEA [None]
  - INFLUENZA LIKE ILLNESS [None]
  - DIARRHOEA [None]
  - DIZZINESS [None]
  - PAIN [None]
  - DECREASED APPETITE [None]
